FAERS Safety Report 6652494-9 (Version None)
Quarter: 2010Q1

REPORT INFORMATION
  Report Type: 
  Country: None (occurrence: None)
  Receive Date: 20100325
  Receipt Date: 20100318
  Transmission Date: 20100710
  Serious: Yes (Hospitalization)
  Sender: FDA-Public Use
  Company Number: GB-AMGEN-QUU392180

PATIENT
  Sex: Male
  Weight: 149.2 kg

DRUGS (3)
  1. ARANESP [Suspect]
     Indication: RENAL FAILURE CHRONIC
     Route: 042
     Dates: start: 20090810, end: 20100209
  2. ALLOPURINOL [Concomitant]
     Dates: start: 20100114
  3. VENOFER [Concomitant]
     Route: 042
     Dates: start: 20091209

REACTIONS (2)
  - FULL BLOOD COUNT ABNORMAL [None]
  - NO THERAPEUTIC RESPONSE [None]
